FAERS Safety Report 4682789-X (Version None)
Quarter: 2005Q2

REPORT INFORMATION
  Report Type: 
  Country: None (occurrence: None)
  Receive Date: 20050531
  Receipt Date: 20050112
  Transmission Date: 20051028
  Serious: Yes (Other)
  Sender: FDA-Public Use
  Company Number: 200510309US

PATIENT
  Age: 80 Year
  Sex: Male

DRUGS (2)
  1. LOVENOX [Suspect]
     Indication: PROPHYLAXIS
  2. HEART MEDICATION (NOS) [Concomitant]

REACTIONS (2)
  - HAEMOGLOBIN DECREASED [None]
  - RETROPERITONEAL HAEMATOMA [None]
